FAERS Safety Report 9539033 (Version 1)
Quarter: 2013Q2

REPORT INFORMATION
  Report Type: Spontaneous
  Country: US (occurrence: None)
  Receive Date: 20130521
  Receipt Date: 20130521
  Transmission Date: 20140414
  Serious: Yes (Other)
  Sender: FDA-Public Use
  Company Number: 1000042887

PATIENT
  Age: 80 Year
  Sex: Female

DRUGS (3)
  1. TUDORZA PRESSAIR [Suspect]
     Indication: ASTHMA
     Dosage: 400 MCG BID (400 MCG, 2 IN 1
     Dates: start: 20130220, end: 20130221
  2. ADVAIR (SERETIDE) (SERETIDE) [Concomitant]
  3. XANAX [Concomitant]

REACTIONS (5)
  - Vision blurred [None]
  - Dysuria [None]
  - Asthenia [None]
  - Tremor [None]
  - Off label use [None]
